FAERS Safety Report 16155965 (Version 1)
Quarter: 2019Q2

REPORT INFORMATION
  Report Type: Spontaneous
  Country: ES (occurrence: ES)
  Receive Date: 20190404
  Receipt Date: 20190404
  Transmission Date: 20190711
  Serious: Yes (Hospitalization)
  Sender: FDA-Public Use
  Company Number: ES-TEVA-2019-ES-1033215

PATIENT
  Age: 81 Year
  Sex: Female

DRUGS (7)
  1. FLUCONAZOL (2432A) [Suspect]
     Active Substance: FLUCONAZOLE
     Indication: ORAL CANDIDIASIS
  2. FLUCONAZOL (2432A) [Suspect]
     Active Substance: FLUCONAZOLE
     Indication: GENITAL CANDIDIASIS
     Dosage: 150 MILLIGRAM DAILY;
     Route: 048
     Dates: start: 20190125, end: 20190129
  3. DONEPEZILO (2780A) [Concomitant]
     Active Substance: DONEPEZIL
     Indication: DEMENTIA ALZHEIMER^S TYPE
     Dosage: 10 MILLIGRAM DAILY;
     Route: 048
     Dates: end: 20190203
  4. ULTRA LEVURA 50 MG CAPSULAS DURAS, 50 C?PSULAS [Concomitant]
     Indication: GASTROENTERITIS
     Dosage: 250 MILLIGRAM DAILY;
     Route: 048
     Dates: start: 20190123
  5. METRONIDAZOL (1966A) [Suspect]
     Active Substance: METRONIDAZOLE
     Indication: GASTROENTERITIS
     Dosage: 500MG /8HOURS
     Route: 048
     Dates: start: 20190123, end: 20190131
  6. MEROPENEM (7155A) [Suspect]
     Active Substance: MEROPENEM
     Indication: SYSTEMIC INFLAMMATORY RESPONSE SYNDROME
     Dosage: 1 GRAM DAILY; 1G/24H
     Route: 042
     Dates: start: 20190119, end: 20190201
  7. VANCOMICINA (3197A) [Concomitant]
     Active Substance: VANCOMYCIN
     Dosage: 500 MG POST HD IN SINGLE DOSE
     Route: 042
     Dates: start: 20190125, end: 20190125

REACTIONS (1)
  - Drug reaction with eosinophilia and systemic symptoms [Recovered/Resolved with Sequelae]

NARRATIVE: CASE EVENT DATE: 20190204
